FAERS Safety Report 22639238 (Version 1)
Quarter: 2023Q2

REPORT INFORMATION
  Report Type: Spontaneous
  Country: US (occurrence: None)
  Receive Date: 20230623
  Receipt Date: 20230623
  Transmission Date: 20230722
  Serious: Yes (Other)
  Sender: FDA-Public Use
  Company Number: None

PATIENT
  Age: 45 Year
  Sex: Female

DRUGS (2)
  1. BENZOCAINE\RESORCINOL [Suspect]
     Active Substance: BENZOCAINE\RESORCINOL
     Indication: Pruritus genital
     Dosage: OTHER STRENGTH : MAXIMUM STRENGTH;?OTHER QUANTITY : 1 OUNCE(S);?FREQUENCY : AS NEEDED;?
     Route: 061
     Dates: start: 20230609, end: 20230614
  2. VAGICAINE MAXIMUM STRENGTH ANTI-ITCH CREAM [Suspect]
     Active Substance: BENZOCAINE\DIMETHICONE\RESORCINOL
     Indication: Pruritus genital
     Dosage: OTHER STRENGTH : MAXIMUM STRENGTH;?OTHER QUANTITY : 1 OUNCE(S);?FREQUENCY : AS NEEDED;?
     Route: 061
     Dates: end: 20230618

REACTIONS (4)
  - Skin burning sensation [None]
  - Skin exfoliation [None]
  - Rash erythematous [None]
  - Drug ineffective [None]

NARRATIVE: CASE EVENT DATE: 20230609
